FAERS Safety Report 14246462 (Version 1)
Quarter: 2017Q4

REPORT INFORMATION
  Report Type: Spontaneous
  Country: US (occurrence: US)
  Receive Date: 20171204
  Receipt Date: 20171204
  Transmission Date: 20180321
  Serious: Yes (Other)
  Sender: FDA-Public Use
  Company Number: US-ALKABELLO-2017AA003957

PATIENT
  Sex: Male

DRUGS (3)
  1. STAE BULK (225) PHLEUM PRATENSE [Suspect]
     Active Substance: PHLEUM PRATENSE POLLEN
     Indication: SKIN TEST
  2. STAE BULK (225) PHLEUM PRATENSE [Suspect]
     Active Substance: PHLEUM PRATENSE POLLEN
     Indication: SKIN TEST
  3. STAE BULK (225) PHLEUM PRATENSE [Suspect]
     Active Substance: PHLEUM PRATENSE POLLEN
     Indication: SKIN TEST

REACTIONS (1)
  - Hypersensitivity [Unknown]
